FAERS Safety Report 9092843 (Version 1)
Quarter: 2013Q1

REPORT INFORMATION
  Report Type: Spontaneous
  Country: GR (occurrence: GR)
  Receive Date: 20130201
  Receipt Date: 20130201
  Transmission Date: 20140127
  Serious: Yes (Hospitalization, Other)
  Sender: FDA-Public Use
  Company Number: GR-JNJFOC-20130114096

PATIENT
  Age: 74 Year
  Sex: Female

DRUGS (1)
  1. REMICADE [Suspect]
     Indication: RHEUMATOID ARTHRITIS
     Route: 042
     Dates: start: 20110202, end: 20110328

REACTIONS (4)
  - Disseminated tuberculosis [Recovered/Resolved with Sequelae]
  - Histiocytosis haematophagic [Recovered/Resolved with Sequelae]
  - Bacteraemia [Recovered/Resolved with Sequelae]
  - Adverse drug reaction [Unknown]
